FAERS Safety Report 16674716 (Version 1)
Quarter: 2019Q3

REPORT INFORMATION
  Report Type: Spontaneous
  Country: NL (occurrence: NL)
  Receive Date: 20190806
  Receipt Date: 20190806
  Transmission Date: 20191004
  Serious: Yes (Hospitalization)
  Sender: FDA-Public Use
  Company Number: NL-MYLANLABS-2019M1073238

PATIENT
  Age: 67 Year
  Sex: Male
  Weight: 96 kg

DRUGS (11)
  1. AZATHIOPRINE. [Suspect]
     Active Substance: AZATHIOPRINE
     Indication: COLITIS ULCERATIVE
     Dosage: 1 X PER DAG 1 STUKS
     Route: 048
     Dates: start: 201812, end: 201812
  2. PARACETAMOL [Concomitant]
     Active Substance: ACETAMINOPHEN
     Dosage: ZO NODIG 4DD2
  3. BECLOMETASONE W/MESALAZINE [Concomitant]
     Dosage: 1 KEER PER 3 DAGEN
  4. ROSUVASTATINE                      /01588601/ [Concomitant]
     Active Substance: ROSUVASTATIN
     Dosage: 1DD10MG
  5. MESALAZINE [Concomitant]
     Active Substance: MESALAMINE
     Dosage: 1DD 3 GRAM
  6. LANTUS [Concomitant]
     Active Substance: INSULIN GLARGINE
     Dosage: UNK
  7. AMITRIPTYLINE [Concomitant]
     Active Substance: AMITRIPTYLINE
     Dosage: 1DD25MG
  8. METFORMINE                         /00082701/ [Concomitant]
     Active Substance: METFORMIN HYDROCHLORIDE
     Dosage: 3DD500MG
  9. MICONAZOL                          /00310801/ [Concomitant]
     Dosage: 2DD 1 DOSIS
  10. BUDENOFALK [Concomitant]
     Active Substance: BUDESONIDE
     Dosage: OM DE DAG 2
  11. PERINDOPRIL [Concomitant]
     Active Substance: PERINDOPRIL
     Dosage: 1DD1

REACTIONS (4)
  - Pyrexia [Recovered/Resolved]
  - Rash [Recovered/Resolved]
  - Malaise [Recovered/Resolved]
  - C-reactive protein increased [Recovered/Resolved]

NARRATIVE: CASE EVENT DATE: 20190212
